FAERS Safety Report 5356778-6 (Version None)
Quarter: 2007Q2

REPORT INFORMATION
  Report Type: 
  Country: None (occurrence: None)
  Receive Date: 20070614
  Receipt Date: 20060626
  Transmission Date: 20071010
  Serious: No
  Sender: FDA-Public Use
  Company Number: US-ASTRAZENECA-2006UW13433

PATIENT
  Age: 72 Year
  Sex: Male

DRUGS (2)
  1. ATACAND [Suspect]
     Indication: HYPERTENSION
     Route: 048
     Dates: start: 20060401
  2. ATACAND [Suspect]
     Route: 048

REACTIONS (2)
  - CARDIAC DISORDER [None]
  - CARDIAC FLUTTER [None]
